FAERS Safety Report 21438532 (Version 2)
Quarter: 2022Q4

REPORT INFORMATION
  Report Type: Report from Study
  Country: EG (occurrence: EG)
  Receive Date: 20221011
  Receipt Date: 20221211
  Transmission Date: 20230112
  Serious: Yes (Other)
  Sender: FDA-Public Use
  Company Number: EG-NOVARTISPH-NVSC2022EG226876

PATIENT
  Sex: Female

DRUGS (7)
  1. AFINITOR [Suspect]
     Active Substance: EVEROLIMUS
     Indication: Carcinoid tumour of the gastrointestinal tract
     Dosage: 10 MG, QD  (MAY OR JUN 2022)
     Route: 048
     Dates: start: 2022
  2. AFINITOR [Suspect]
     Active Substance: EVEROLIMUS
     Indication: Hepatic neoplasm
  3. BISOPROLOL FUMARATE [Concomitant]
     Active Substance: BISOPROLOL FUMARATE
     Indication: Hypertension
     Dosage: UNK (EARLY MORNING) (9 YEARS AGO)
     Route: 065
  4. ASPIRIN [Concomitant]
     Active Substance: ASPIRIN
     Indication: Hypertension
     Dosage: UNK (EARLY MORNING) (9 YEARS AGO)
     Route: 065
  5. SPASMO AMRASE [Concomitant]
     Indication: Prophylaxis
     Dosage: UNK (IN THE EVENING) (MAY OR JUN 2022)
     Route: 065
     Dates: start: 2022
  6. SANDOSTATIN LAR DEPOT [Concomitant]
     Active Substance: OCTREOTIDE ACETATE
     Indication: Carcinoid tumour of the gastrointestinal tract
     Dosage: UNK, QMO (MAY OR JUN 2022)
     Route: 065
     Dates: start: 2022
  7. SANDOSTATIN LAR DEPOT [Concomitant]
     Active Substance: OCTREOTIDE ACETATE
     Indication: Hepatic neoplasm

REACTIONS (12)
  - Thirst [Not Recovered/Not Resolved]
  - Hyperhidrosis [Not Recovered/Not Resolved]
  - Chills [Not Recovered/Not Resolved]
  - Pyrexia [Not Recovered/Not Resolved]
  - Hypersensitivity [Recovered/Resolved]
  - Constipation [Not Recovered/Not Resolved]
  - Diarrhoea [Not Recovered/Not Resolved]
  - Hepatic pain [Not Recovered/Not Resolved]
  - Gastrointestinal pain [Not Recovered/Not Resolved]
  - Abdominal pain upper [Not Recovered/Not Resolved]
  - Nausea [Not Recovered/Not Resolved]
  - Fatigue [Unknown]
